FAERS Safety Report 5336902-1 (Version None)
Quarter: 2007Q2

REPORT INFORMATION
  Report Type: 
  Country: None (occurrence: None)
  Receive Date: 20070529
  Receipt Date: 20070517
  Transmission Date: 20071010
  Serious: Yes (Life-Threatening, Hospitalization)
  Sender: FDA-Public Use
  Company Number: JP-SANOFI-SYNTHELABO-A01200705530

PATIENT
  Sex: Female
  Weight: 55 kg

DRUGS (4)
  1. ISOVORIN [Concomitant]
     Route: 041
     Dates: start: 20070314, end: 20070315
  2. SOLDEM [Concomitant]
     Indication: DIARRHOEA
     Route: 041
     Dates: start: 20070319, end: 20070320
  3. FLUOROURACIL [Suspect]
     Indication: RECTAL CANCER
     Dosage: 500 MG/BODY=322.6 MG/M2 IN BOLUS THEN 3750MG/BODY=2419.4 MG/M2 AS INFUSION, D1-2
     Route: 041
     Dates: start: 20070314, end: 20070315
  4. OXALIPLATIN [Suspect]
     Indication: RECTAL CANCER
     Route: 041
     Dates: start: 20070314, end: 20070314

REACTIONS (3)
  - DUODENAL ULCER PERFORATION [None]
  - LEUKOPENIA [None]
  - NEUTROPENIA [None]
